FAERS Safety Report 6142309-X (Version None)
Quarter: 2009Q2

REPORT INFORMATION
  Report Type: 
  Country: None (occurrence: None)
  Receive Date: 20090403
  Receipt Date: 20090331
  Transmission Date: 20091009
  Serious: Yes (Hospitalization, Other)
  Sender: FDA-Public Use
  Company Number: US-PFIZER INC-2005087371

PATIENT
  Sex: Female
  Weight: 77.1 kg

DRUGS (8)
  1. PROVERA [Suspect]
     Indication: HORMONE REPLACEMENT THERAPY
     Dosage: UNK
     Route: 048
     Dates: start: 19750101, end: 20000301
  2. PREMARIN [Suspect]
     Indication: HORMONE REPLACEMENT THERAPY
     Dosage: UNK
     Route: 048
     Dates: start: 19750101, end: 20000301
  3. PREMPRO [Suspect]
     Indication: HORMONE REPLACEMENT THERAPY
     Dosage: UNK
     Route: 048
     Dates: start: 20000401, end: 20040101
  4. ACETYLSALICYLIC ACID [Concomitant]
     Indication: ROUTINE HEALTH MAINTENANCE
     Dosage: UNK
     Route: 065
     Dates: start: 20000101
  5. PAXIL [Concomitant]
     Indication: ANXIETY
     Dosage: UNK
     Route: 065
     Dates: start: 20020101
  6. CELEBREX [Concomitant]
     Indication: ARTHRITIS
     Dosage: UNK
     Route: 065
     Dates: start: 20000101
  7. HYDROCHLOROTHIAZIDE [Concomitant]
     Indication: HYPERTENSION
     Dosage: UNK
     Route: 065
     Dates: start: 19970101
  8. MERIDIA [Concomitant]
     Indication: WEIGHT DECREASED
     Dosage: UNK
     Route: 065
     Dates: start: 20030101

REACTIONS (1)
  - BREAST CANCER [None]
